FAERS Safety Report 4907161-6 (Version None)
Quarter: 2006Q1

REPORT INFORMATION
  Report Type: 
  Country: None (occurrence: None)
  Receive Date: 20060206
  Receipt Date: 20060130
  Transmission Date: 20060701
  Serious: Yes (Life-Threatening)
  Sender: FDA-Public Use
  Company Number: 2006-137824-NL

PATIENT
  Age: 52 Year
  Sex: Female

DRUGS (3)
  1. DANAPAROID SODIUM [Suspect]
     Dosage: SUBCUTANEOUS
     Route: 058
  2. HEPARIN SODIUM [Suspect]
     Dosage: INTRAVENOUS (NOS)
     Route: 042
  3. NADROPARIN CALCIUM [Suspect]
     Dosage: 0.7 ML BID SUBCUTANEOUS
     Route: 058
     Dates: start: 20050329, end: 20050405

REACTIONS (3)
  - HEPARIN-INDUCED THROMBOCYTOPENIA [None]
  - PANCREATITIS [None]
  - PULMONARY EMBOLISM [None]
